FAERS Safety Report 9255237 (Version 1)
Quarter: 2013Q2

REPORT INFORMATION
  Report Type: Spontaneous
  Country: US (occurrence: US)
  Receive Date: 20130425
  Receipt Date: 20130425
  Transmission Date: 20140414
  Serious: Yes (Life-Threatening, Hospitalization)
  Sender: FDA-Public Use
  Company Number: US-BAYER-2013-051815

PATIENT
  Age: 34 Year
  Sex: Female
  Weight: 77.1 kg

DRUGS (4)
  1. YASMIN [Suspect]
  2. LEVOTHROID [Concomitant]
     Dosage: 50 MCG, UNK
  3. ACYCLOVIR ALPHARMA [ACICLOVIR SODIUM] [Concomitant]
     Dosage: UNK UNK, PRN
  4. SYNTHROID [Concomitant]

REACTIONS (2)
  - Pulmonary embolism [Recovered/Resolved]
  - Deep vein thrombosis [Recovered/Resolved]
